FAERS Safety Report 15111851 (Version 2)
Quarter: 2018Q4

REPORT INFORMATION
  Report Type: Report from Study
  Country: US (occurrence: US)
  Receive Date: 20180705
  Receipt Date: 20181029
  Transmission Date: 20190204
  Serious: Yes (Death, Hospitalization, Other)
  Sender: FDA-Public Use
  Company Number: US-BRISTOL-MYERS SQUIBB COMPANY-BMS-2018-059844

PATIENT
  Age: 64 Year
  Sex: Male
  Weight: 78.45 kg

DRUGS (10)
  1. CARFILZOMIB [Suspect]
     Active Substance: CARFILZOMIB
     Indication: PLASMA CELL MYELOMA
     Route: 065
  2. DEXAMETHASONE. [Concomitant]
     Active Substance: DEXAMETHASONE
     Indication: PRODUCT USED FOR UNKNOWN INDICATION
     Dosage: 8 MG, UNK
     Route: 042
  3. FAMOTIDINE. [Concomitant]
     Active Substance: FAMOTIDINE
     Indication: PRODUCT USED FOR UNKNOWN INDICATION
     Dosage: 20 MG, UNK
     Route: 042
  4. DIPHENHYDRAMINE. [Concomitant]
     Active Substance: DIPHENHYDRAMINE
     Indication: PRODUCT USED FOR UNKNOWN INDICATION
     Dosage: 50 MG, UNK
     Route: 042
  5. KYPROLIS [Concomitant]
     Active Substance: CARFILZOMIB
     Indication: PRODUCT USED FOR UNKNOWN INDICATION
     Dosage: 38 MG, UNK
     Route: 042
  6. POMALYST [Concomitant]
     Active Substance: POMALIDOMIDE
     Indication: PRODUCT USED FOR UNKNOWN INDICATION
     Dosage: 3 MG, UNK
     Route: 048
  7. APAP [Concomitant]
     Active Substance: ACETAMINOPHEN
     Indication: PRODUCT USED FOR UNKNOWN INDICATION
     Dosage: 650 MG, UNK
     Route: 048
  8. PROCRIT [Concomitant]
     Active Substance: ERYTHROPOIETIN
     Indication: PRODUCT USED FOR UNKNOWN INDICATION
     Dosage: 40000 UNIT, UNK
     Route: 065
  9. ELOTUZUMAB. [Suspect]
     Active Substance: ELOTUZUMAB
     Indication: PLASMA CELL MYELOMA
     Dosage: 10 MG/KG, QWK
     Route: 042
     Dates: start: 20180621
  10. DEXAMETHASONE. [Concomitant]
     Active Substance: DEXAMETHASONE
     Indication: PRODUCT USED FOR UNKNOWN INDICATION
     Dosage: 28 MG, UNK
     Route: 048

REACTIONS (34)
  - Rectal haemorrhage [Unknown]
  - Epistaxis [Recovered/Resolved]
  - Spinal cord injury [Unknown]
  - Pulmonary oedema [Recovered/Resolved]
  - Pyelonephritis acute [Unknown]
  - Febrile neutropenia [Recovered/Resolved]
  - Cardiac failure congestive [Unknown]
  - Cardiomegaly [Unknown]
  - Deformity thorax [Unknown]
  - Urinary tract infection [Unknown]
  - Acute kidney injury [Unknown]
  - Respiratory failure [Unknown]
  - Multiple organ dysfunction syndrome [Fatal]
  - Thrombocytopenia [Unknown]
  - Renal impairment [Unknown]
  - Supraventricular extrasystoles [Unknown]
  - Tachycardia [Unknown]
  - Pyrexia [Unknown]
  - Spinal osteoarthritis [Unknown]
  - Hyperviscosity syndrome [Unknown]
  - Fatigue [Unknown]
  - Neutropenia [Recovered/Resolved]
  - Sinus tachycardia [Unknown]
  - Ventricular extrasystoles [Unknown]
  - Urinary retention [Unknown]
  - Urinary tract obstruction [Unknown]
  - Decreased appetite [Unknown]
  - Chest pain [Recovered/Resolved]
  - Hypotension [Unknown]
  - Atelectasis [Unknown]
  - Renal tubular necrosis [Unknown]
  - Sepsis [Unknown]
  - Kyphosis [Unknown]
  - Atrial fibrillation [Unknown]

NARRATIVE: CASE EVENT DATE: 20180621
